FAERS Safety Report 8927664 (Version 1)
Quarter: 2012Q4

REPORT INFORMATION
  Report Type: Report from Study
  Country: JP (occurrence: JP)
  Receive Date: 20121127
  Receipt Date: 20121127
  Transmission Date: 20130627
  Serious: Yes (Death, Life-Threatening)
  Sender: FDA-Public Use
  Company Number: JP-MERCK-1211JPN008701

PATIENT
  Age: 57 Year
  Sex: Male
  Weight: 40.9 kg

DRUGS (13)
  1. DECADRON [Suspect]
     Indication: PAIN
     Dosage: 2 mg, qd
     Route: 048
     Dates: start: 20020604
  2. XALKORI [Suspect]
     Indication: NON-SMALL CELL LUNG CANCER
     Dosage: 250 mg, bid
     Route: 048
     Dates: start: 20120524, end: 20120615
  3. OXYCONTIN [Suspect]
     Indication: PAIN
     Dosage: 40 mg, bid
     Route: 048
     Dates: start: 20120606
  4. LOXONIN [Concomitant]
     Dosage: 60 mg, tid
     Route: 048
     Dates: start: 20120602
  5. ALFAROL [Concomitant]
     Dosage: 0.5 Microgram, qd
     Dates: start: 20120602
  6. PARIET [Concomitant]
     Dosage: 10 mg, qd
     Route: 048
     Dates: start: 20120602
  7. NOVAMIN (PROCHLORPERAZINE MALEATE) [Concomitant]
     Dosage: 5 mg, tid
     Route: 048
     Dates: start: 20120602
  8. PRIMPERAN [Concomitant]
     Dosage: 5 mg, bid
     Route: 048
     Dates: start: 20120602
  9. ASPARA CA [Concomitant]
     Dosage: 400 mg, tid
     Route: 048
     Dates: start: 20120607
  10. MAGLAX (MAGNESIUM OXIDE) [Concomitant]
     Dosage: 660 mg, tid
     Route: 048
     Dates: start: 20120607
  11. LENDORMIN [Concomitant]
     Dosage: 0.25 mg, qd (before sleep)
     Dates: start: 20120608
  12. SERENACE [Concomitant]
     Dosage: 1.5 mg, qd (before sleep)
     Dates: start: 20120612
  13. PROPETO [Concomitant]
     Dosage: UNK
     Dates: start: 20120614

REACTIONS (2)
  - Non-small cell lung cancer [Fatal]
  - Cholecystitis chronic [Recovered/Resolved]
